FAERS Safety Report 9437117 (Version 2)
Quarter: 2013Q3

REPORT INFORMATION
  Report Type: Spontaneous
  Country: BR (occurrence: BR)
  Receive Date: 20130802
  Receipt Date: 20130902
  Transmission Date: 20140515
  Serious: Yes (Other)
  Sender: FDA-Public Use
  Company Number: BR-AMGEN-BRASP2013049912

PATIENT
  Age: 60 Year
  Sex: Male
  Weight: 74 kg

DRUGS (4)
  1. ENBREL [Suspect]
     Indication: RHEUMATOID ARTHRITIS
     Dosage: 50 MG, ONCE WEEKLY
     Route: 058
     Dates: start: 201305
  2. METHOTREXATE [Concomitant]
     Dosage: 6 MG, ONCE A WEEK
  3. OMEPRAZOLE [Concomitant]
     Indication: PAIN
     Dosage: UNK UNK, AS NECESSARY
  4. DEFLAMOX PLUS [Concomitant]
     Dosage: 7 MG (1 TABLET) ONCE A DAY

REACTIONS (4)
  - Dyspnoea [Not Recovered/Not Resolved]
  - Fatigue [Not Recovered/Not Resolved]
  - Influenza [Unknown]
  - Pneumonia [Unknown]
